FAERS Safety Report 21903106 (Version 1)
Quarter: 2023Q1

REPORT INFORMATION
  Report Type: Spontaneous
  Country: DE (occurrence: DE)
  Receive Date: 20230124
  Receipt Date: 20230124
  Transmission Date: 20230417
  Serious: Yes (Hospitalization)
  Sender: FDA-Public Use
  Company Number: None

PATIENT
  Age: 56 Year
  Sex: Male
  Weight: 100 kg

DRUGS (13)
  1. APIXABAN [Suspect]
     Active Substance: APIXABAN
     Indication: Product used for unknown indication
     Dosage: 5 MG, 1-0-1-0
  2. CALCIUM [Concomitant]
     Active Substance: CALCIUM
     Dosage: 1-0-1-0
  3. AMPHOTERICIN B [Concomitant]
     Active Substance: AMPHOTERICIN B
     Dosage: 1-1-1-1, SUPPOSITORY
  4. METAMIZOLE [Concomitant]
     Active Substance: METAMIZOLE
     Dosage: 30 DROPS, 1-1-1-1
  5. LEVETIRACETAM [Concomitant]
     Active Substance: LEVETIRACETAM
     Dosage: 500 MG, 1-0-2-0
  6. PANTOPRAZOLE [Concomitant]
     Active Substance: PANTOPRAZOLE
     Dosage: 40 MG, 1-0-0-0
  7. TORSEMIDE [Concomitant]
     Active Substance: TORSEMIDE
     Dosage: 5 MG, 1-0-0-0
  8. DEXAMETHASONE [Concomitant]
     Active Substance: DEXAMETHASONE
     Dosage: 8 MG, 0.5-0-0-0
  9. RAMIPRIL [Concomitant]
     Active Substance: RAMIPRIL
     Dosage: 2.5 MG, 1-0-0-0
  10. POTASSIUM [Concomitant]
     Active Substance: POTASSIUM
     Dosage: 20 MMOL, SCHEMA
  11. SULFAMETHOXAZOLE\TRIMETHOPRIM [Concomitant]
     Active Substance: SULFAMETHOXAZOLE\TRIMETHOPRIM
     Dosage: 800, 160 MG, SCHEME
  12. PIPAMPERONE [Concomitant]
     Active Substance: PIPAMPERONE
     Dosage: 40 MG, 0-0-0-1
  13. LEVETIRACETAM [Concomitant]
     Active Substance: LEVETIRACETAM
     Dosage: 250 MG, 0-0-1-0

REACTIONS (10)
  - Oedema peripheral [Unknown]
  - Impaired self-care [Unknown]
  - Tremor [Unknown]
  - Wheezing [Unknown]
  - Weight increased [Unknown]
  - Anaemia [Unknown]
  - Epistaxis [Unknown]
  - Mucosal haemorrhage [Unknown]
  - Cough [Unknown]
  - General physical health deterioration [Unknown]
